FAERS Safety Report 25260346 (Version 2)
Quarter: 2025Q2

REPORT INFORMATION
  Report Type: Report from Study
  Country: BR (occurrence: BR)
  Receive Date: 20250501
  Receipt Date: 20250508
  Transmission Date: 20250716
  Serious: Yes (Other)
  Sender: NOVARTIS
  Company Number: BR-002147023-NVSC2025BR069516

PATIENT
  Age: 42 Year
  Sex: Female

DRUGS (1)
  1. NILOTINIB [Suspect]
     Active Substance: NILOTINIB
     Indication: Chronic myeloid leukaemia
     Route: 065

REACTIONS (14)
  - Syncope [Unknown]
  - Haemorrhage [Unknown]
  - Acute febrile neutrophilic dermatosis [Unknown]
  - Full blood count abnormal [Unknown]
  - Headache [Unknown]
  - Malaise [Unknown]
  - Hypotension [Unknown]
  - Psoriasis [Unknown]
  - Weight increased [Unknown]
  - Aphthous ulcer [Unknown]
  - Fatigue [Unknown]
  - Fluid retention [Unknown]
  - Therapeutic response decreased [Unknown]
  - Feeling abnormal [Unknown]

NARRATIVE: CASE EVENT DATE: 20210101
